FAERS Safety Report 5145916-6 (Version None)
Quarter: 2006Q4

REPORT INFORMATION
  Report Type: 
  Country: None (occurrence: None)
  Receive Date: 20061102
  Receipt Date: 20061024
  Transmission Date: 20070319
  Serious: Yes (Hospitalization)
  Sender: FDA-Public Use
  Company Number: 2006049473

PATIENT
  Age: 44 Year
  Sex: Male
  Weight: 70 kg

DRUGS (4)
  1. SERTRALINE [Suspect]
     Indication: ANXIETY
     Dosage: 100 MG (100 MG, 1 IN 1 D), ORAL
     Route: 048
     Dates: start: 20060109, end: 20060324
  2. SERTRALINE [Suspect]
     Indication: OBSESSIVE-COMPULSIVE DISORDER
     Dosage: 100 MG (100 MG, 1 IN 1 D), ORAL
     Route: 048
     Dates: start: 20060109, end: 20060324
  3. BUSPAR [Suspect]
     Indication: ANXIETY
     Dosage: 20 MG (1 IN 1 D), ORAL
     Route: 048
     Dates: start: 20060109, end: 20060324
  4. BUSPAR [Suspect]
     Indication: OBSESSIVE-COMPULSIVE DISORDER
     Dosage: 20 MG (1 IN 1 D), ORAL
     Route: 048
     Dates: start: 20060109, end: 20060324

REACTIONS (2)
  - STAPHYLOCOCCAL INFECTION [None]
  - VENTRICULAR TACHYCARDIA [None]
